FAERS Safety Report 14000547 (Version 1)
Quarter: 2017Q3

REPORT INFORMATION
  Report Type: Spontaneous
  Country: AT (occurrence: AT)
  Receive Date: 20170922
  Receipt Date: 20170922
  Transmission Date: 20171128
  Serious: Yes (Other)
  Sender: FDA-Public Use
  Company Number: AT-JNJFOC-20170916497

PATIENT
  Sex: Male

DRUGS (1)
  1. STELARA [Suspect]
     Active Substance: USTEKINUMAB
     Indication: PITYRIASIS RUBRA PILARIS
     Route: 058
     Dates: end: 20160926

REACTIONS (4)
  - Product use in unapproved indication [Unknown]
  - Inguinal hernia [Unknown]
  - Off label use [Unknown]
  - Pityriasis rubra pilaris [Recovering/Resolving]

NARRATIVE: CASE EVENT DATE: 201701
